FAERS Safety Report 5932641 (Version 1)
Quarter: 2020Q3

REPORT INFORMATION
  Report Type: Report from Study
  Country: US (occurrence: US)
  Receive Date: 20051130
  Receipt Date: 20051130
  Transmission Date: 20201104
  Serious: Yes (Other)
  Sender: FDA-Public Use
  Company Number: US-JNJFOC-20051106392

PATIENT
  Age: 9 Year
  Sex: Female
  Weight: 29.6 kg

DRUGS (2)
  1. CISAPRIDE [Suspect]
     Active Substance: CISAPRIDE
     Route: 048
  2. CISAPRIDE [Suspect]
     Active Substance: CISAPRIDE
     Route: 048

REACTIONS (1)
  - Benign bone neoplasm [Recovered/Resolved]

NARRATIVE: CASE EVENT DATE: 20050106
